FAERS Safety Report 19160624 (Version 1)
Quarter: 2021Q2

REPORT INFORMATION
  Report Type: Spontaneous
  Country: US (occurrence: US)
  Receive Date: 20210421
  Receipt Date: 20210421
  Transmission Date: 20210717
  Serious: Yes (Hospitalization)
  Sender: FDA-Public Use
  Company Number: US-ROCHE-2814046

PATIENT
  Age: 74 Year
  Sex: Female

DRUGS (14)
  1. VITAMIN D3 [Concomitant]
     Active Substance: CHOLECALCIFEROL
  2. ATORVASTATIN [Concomitant]
     Active Substance: ATORVASTATIN
  3. MUCINEX [Concomitant]
     Active Substance: GUAIFENESIN
  4. VITAMIN C [Concomitant]
     Active Substance: ASCORBIC ACID
  5. OXYBUTYNIN CHLORIDE. [Concomitant]
     Active Substance: OXYBUTYNIN CHLORIDE
  6. PANTOPRAZOLE [Concomitant]
     Active Substance: PANTOPRAZOLE
  7. VITAMIN A [Concomitant]
     Active Substance: VITAMIN A
  8. NIACIN ER [Concomitant]
     Active Substance: NIACIN
  9. ESBRIET [Suspect]
     Active Substance: PIRFENIDONE
     Indication: IDIOPATHIC PULMONARY FIBROSIS
     Dosage: 2 TABLETS
     Route: 048
  10. PEPCID AC [Concomitant]
     Active Substance: FAMOTIDINE
  11. ASPIRIN. [Concomitant]
     Active Substance: ASPIRIN
  12. FLUTICASONE. [Concomitant]
     Active Substance: FLUTICASONE
  13. TYLENOL 8HR [Concomitant]
     Active Substance: ACETAMINOPHEN
  14. ALBUTEROL. [Concomitant]
     Active Substance: ALBUTEROL
     Dosage: 108

REACTIONS (1)
  - Pulmonary oedema [Recovered/Resolved]

NARRATIVE: CASE EVENT DATE: 20210325
